FAERS Safety Report 6541251-X (Version None)
Quarter: 2010Q1

REPORT INFORMATION
  Report Type: 
  Country: None (occurrence: None)
  Receive Date: 20100118
  Receipt Date: 20100107
  Transmission Date: 20100710
  Serious: Yes (Hospitalization)
  Sender: FDA-Public Use
  Company Number: FR-ELI_LILLY_AND_COMPANY-FR200910004642

PATIENT
  Age: 50 Year
  Sex: Female

DRUGS (9)
  1. BYETTA [Suspect]
     Indication: TYPE 2 DIABETES MELLITUS
     Dosage: 5 UG, 2/D
     Route: 058
     Dates: start: 20090515
  2. BYETTA [Suspect]
     Dosage: 10 UG, 2/D
     Route: 058
     Dates: end: 20091015
  3. NOVONORM [Concomitant]
  4. METFORMIN HCL [Concomitant]
  5. TRIATEC [Concomitant]
     Dosage: UNK, UNKNOWN
     Route: 048
  6. DEPAKOTE [Concomitant]
     Dosage: UNK, UNKNOWN
     Route: 048
  7. ZOPICLONE [Concomitant]
     Dosage: UNK, UNKNOWN
     Route: 065
  8. NOVORAPID [Concomitant]
     Dosage: UNK, UNKNOWN
     Route: 065
  9. LEVEMIR [Concomitant]
     Dosage: UNK, UNKNOWN
     Route: 065

REACTIONS (1)
  - PANCREATITIS [None]
